FAERS Safety Report 5984332-1 (Version None)
Quarter: 2008Q4

REPORT INFORMATION
  Report Type: 
  Country: None (occurrence: None)
  Receive Date: 20081208
  Receipt Date: 20081128
  Transmission Date: 20090506
  Serious: Yes (Other)
  Sender: FDA-Public Use
  Company Number: PHBS2008IT06508

PATIENT
  Age: 29 Year
  Sex: Male

DRUGS (3)
  1. EVEROLIMUS [Suspect]
     Indication: RENAL TRANSPLANT
     Route: 065
  2. CYCLOSPORINE [Suspect]
     Indication: RENAL TRANSPLANT
     Route: 065
  3. STEROIDS NOS [Suspect]
     Indication: RENAL TRANSPLANT
     Route: 065

REACTIONS (2)
  - GLOMERULAR FILTRATION RATE DECREASED [None]
  - PROTEINURIA [None]
